FAERS Safety Report 9816277 (Version 1)
Quarter: 2014Q1

REPORT INFORMATION
  Report Type: Spontaneous
  Country: US (occurrence: US)
  Receive Date: 20140114
  Receipt Date: 20140114
  Transmission Date: 20141002
  Serious: Yes (Disabling)
  Sender: FDA-Public Use
  Company Number: US-GE HEALTHCARE MEDICAL DIAGNOSTICS-OSCN-PR-1401S-0003

PATIENT
  Sex: Male

DRUGS (2)
  1. OMNISCAN [Suspect]
     Indication: INTESTINAL ANGINA
     Dates: start: 20060902, end: 20060902
  2. OMNISCAN [Suspect]
     Dates: start: 20061212, end: 20061212

REACTIONS (1)
  - Nephrogenic systemic fibrosis [Not Recovered/Not Resolved]
